FAERS Safety Report 5651625-7 (Version None)
Quarter: 2008Q1

REPORT INFORMATION
  Report Type: 
  Country: None (occurrence: None)
  Receive Date: 20080305
  Receipt Date: 20080229
  Transmission Date: 20080703
  Serious: Yes (Hospitalization)
  Sender: FDA-Public Use
  Company Number: DE-AVENTIS-200810611DE

PATIENT
  Age: 70 Year
  Sex: Female
  Weight: 94 kg

DRUGS (4)
  1. DOCETAXEL [Suspect]
     Indication: BREAST CANCER
     Route: 042
     Dates: start: 20070412, end: 20070510
  2. GEMCITABINE [Suspect]
     Indication: BREAST CANCER
     Route: 042
     Dates: start: 20070412, end: 20070510
  3. GRANISETRON [Concomitant]
     Route: 042
     Dates: start: 20070412, end: 20070510
  4. DEXAMETHASONE [Concomitant]
     Dosage: DOSE: 8 MG I.V. + 8 MG NOS
     Dates: start: 20070412, end: 20070510

REACTIONS (2)
  - HYPOVOLAEMIA [None]
  - RENAL FAILURE [None]
